FAERS Safety Report 7438378-7 (Version None)
Quarter: 2011Q2

REPORT INFORMATION
  Report Type: 
  Country: None (occurrence: None)
  Receive Date: 20110426
  Receipt Date: 20110329
  Transmission Date: 20111010
  Serious: Yes (Hospitalization)
  Sender: FDA-Public Use
  Company Number: US-BAYER-2010-002730

PATIENT
  Age: 46 Year
  Sex: Female
  Weight: 56 kg

DRUGS (4)
  1. YAZ [Suspect]
     Indication: PRODUCT USED FOR UNKNOWN INDICATION
     Dosage: UNK
     Dates: start: 20080901, end: 20081201
  2. VITAMIN D [Concomitant]
  3. YASMIN [Suspect]
     Indication: PRODUCT USED FOR UNKNOWN INDICATION
     Dosage: UNK
     Dates: start: 20080901, end: 20081201
  4. TRAMADOL [Concomitant]
     Dosage: UNK
     Dates: start: 20081227

REACTIONS (1)
  - DEEP VEIN THROMBOSIS [None]
